FAERS Safety Report 5899248-9 (Version None)
Quarter: 2008Q3

REPORT INFORMATION
  Report Type: 
  Country: None (occurrence: None)
  Receive Date: 20080902
  Receipt Date: 20080408
  Transmission Date: 20090109
  Serious: Yes (Other)
  Sender: FDA-Public Use
  Company Number: KADN20080022

PATIENT
  Age: 49 Year
  Sex: Female
  Weight: 61.2356 kg

DRUGS (28)
  1. KADIAN [Suspect]
     Indication: BACK PAIN
     Dosage: 100 MG, 1 CAP BID
     Dates: start: 20060828, end: 20070130
  2. ACTIQ [Suspect]
     Indication: BACK PAIN
     Dosage: 800 MCG, OROMUCOSAL USE
     Dates: start: 20020506, end: 20070103
  3. LORCET-HD [Suspect]
     Indication: BACK PAIN
     Dosage: PER ORAL
     Route: 048
     Dates: start: 19991027
  4. NORCO [Suspect]
     Indication: BACK PAIN
     Dosage: PER ORAL
     Route: 049
     Dates: start: 20000105
  5. NORCO [Suspect]
     Indication: BACK PAIN
     Dosage: 20 MG Q4H
     Dates: end: 20020822
  6. OXYCONTIN [Suspect]
     Indication: BACK PAIN
     Dosage: 140 MG DAILY
     Dates: start: 19991027
  7. OXYCONTIN [Suspect]
     Dosage: 100 MG DAILY
     Dates: end: 20020822
  8. ROXICET [Suspect]
     Dates: start: 20001109
  9. STADOL [Suspect]
     Dosage: 10 MG, NASAL
     Route: 045
     Dates: start: 20011109
  10. OXYCODONE HCL [Suspect]
     Dosage: 10 MG, 1 TAB QID
     Dates: start: 20020101, end: 20020101
  11. METHADONE HCL [Suspect]
     Dosage: 10 MG, 1 TAB TID
     Dates: start: 20020822, end: 20020903
  12. METHADONE HCL [Suspect]
     Dosage: 20 MG, 1 TAB TID
     Dates: start: 20020904, end: 20030609
  13. METHADONE HCL [Suspect]
     Dosage: 10 MG 1 TAB QID
     Dates: start: 20030610, end: 20040907
  14. DURAGESIC-100 [Suspect]
     Dates: start: 20040907, end: 20070501
  15. MORPHINE SULFATE INJ [Suspect]
     Dosage: 15 MG
  16. ENDOCET [Suspect]
     Dates: start: 20060302
  17. VICODIN ES [Suspect]
     Dates: start: 20040507
  18. DILAUDID [Suspect]
     Dosage: 4 MG, 1 TAB QID
     Dates: start: 20050213, end: 20060918
  19. DILAUDID [Suspect]
     Dosage: 4 MG, 1 TAB TID
     Dates: start: 20060919, end: 20070131
  20. SEROQUEL [Concomitant]
  21. VALIUM [Concomitant]
  22. ZANAFLEX [Concomitant]
  23. DESYREL [Concomitant]
  24. ATIVAN [Concomitant]
  25. ZOLOFT [Concomitant]
  26. NEURONTIN [Concomitant]
  27. TOPAMAX [Concomitant]
  28. WELLBUTRIN XL [Concomitant]

REACTIONS (7)
  - ABNORMAL BEHAVIOUR [None]
  - DENTAL CARIES [None]
  - DEPRESSION [None]
  - DRUG ABUSER [None]
  - DRUG DEPENDENCE [None]
  - DYSARTHRIA [None]
  - TOOTH ABSCESS [None]
